FAERS Safety Report 11726666 (Version 1)
Quarter: 2015Q4

REPORT INFORMATION
  Report Type: Spontaneous
  Country: ZA (occurrence: ZA)
  Receive Date: 20151112
  Receipt Date: 20151112
  Transmission Date: 20160304
  Serious: Yes (Hospitalization, Other)
  Sender: FDA-Public Use
  Company Number: ZA-DRREDDYS-USA/SAF/15/0053902

PATIENT
  Age: 39 Year
  Sex: Male

DRUGS (1)
  1. CIPROFLOXACIN. [Suspect]
     Active Substance: CIPROFLOXACIN
     Indication: DYSURIA
     Route: 065
     Dates: start: 2009

REACTIONS (1)
  - Kounis syndrome [Recovered/Resolved]
